FAERS Safety Report 7371934-3 (Version None)
Quarter: 2011Q1

REPORT INFORMATION
  Report Type: 
  Country: None (occurrence: None)
  Receive Date: 20110324
  Receipt Date: 20100909
  Transmission Date: 20110831
  Serious: No
  Sender: FDA-Public Use
  Company Number: US-BAUSCH-2010BL005099

PATIENT
  Age: 55 Year
  Sex: Female

DRUGS (1)
  1. FLUNISOLIDE [Suspect]
     Indication: RHINITIS ALLERGIC
     Route: 045
     Dates: start: 20100701

REACTIONS (3)
  - NASAL CONGESTION [None]
  - NASAL DISCOMFORT [None]
  - EPISTAXIS [None]
